FAERS Safety Report 25623560 (Version 2)
Quarter: 2025Q3

REPORT INFORMATION
  Report Type: Report from Study
  Country: US (occurrence: US)
  Receive Date: 20250730
  Receipt Date: 20250915
  Transmission Date: 20251020
  Serious: Yes (Other)
  Sender: UCB
  Company Number: US-UCBSA-2025046806

PATIENT
  Sex: Female

DRUGS (4)
  1. BIMEKIZUMAB [Suspect]
     Active Substance: BIMEKIZUMAB
     Indication: Psoriatic arthropathy
     Dosage: 320 MILLIGRAM, EV 4 WEEKS
     Route: 058
     Dates: start: 20250504
  2. BIMEKIZUMAB [Suspect]
     Active Substance: BIMEKIZUMAB
     Indication: Psoriasis
  3. DICLOFENAC [Concomitant]
     Active Substance: DICLOFENAC
     Indication: Inflammation
     Dosage: 50 MILLIGRAM, 2X/DAY (BID)
     Route: 048
  4. PHENTERMINE [Concomitant]
     Active Substance: PHENTERMINE
     Indication: Obesity
     Dosage: 37.5 MILLIGRAM, ONCE DAILY (QD)
     Route: 048
     Dates: start: 202505

REACTIONS (3)
  - Psoriatic arthropathy [Recovered/Resolved]
  - Acoustic neuroma [Unknown]
  - Therapeutic response shortened [Unknown]

NARRATIVE: CASE EVENT DATE: 20250101
